FAERS Safety Report 7020670-1 (Version None)
Quarter: 2010Q3

REPORT INFORMATION
  Report Type: 
  Country: None (occurrence: None)
  Receive Date: 20100929
  Receipt Date: 20100920
  Transmission Date: 20110219
  Serious: Yes (Hospitalization)
  Sender: FDA-Public Use
  Company Number: FI-ASTRAZENECA-2010SE44522

PATIENT
  Age: 24 Year
  Sex: Female

DRUGS (3)
  1. SEROQUEL XR [Suspect]
     Indication: BIPOLAR DISORDER
     Route: 048
     Dates: start: 20100726, end: 20100828
  2. SEROQUEL XR [Suspect]
     Route: 048
     Dates: start: 20100828, end: 20100828
  3. DEPRAKINE [Concomitant]
     Indication: BIPOLAR DISORDER
     Route: 048
     Dates: start: 20100810

REACTIONS (3)
  - FATIGUE [None]
  - NEUTROPENIA [None]
  - PALPITATIONS [None]
